APPROVED DRUG PRODUCT: VALGANCICLOVIR HYDROCHLORIDE
Active Ingredient: VALGANCICLOVIR HYDROCHLORIDE
Strength: EQ 450MG BASE
Dosage Form/Route: TABLET;ORAL
Application: A206876 | Product #001 | TE Code: AB
Applicant: DR REDDYS LABORATORIES LTD
Approved: Dec 12, 2017 | RLD: No | RS: No | Type: RX